FAERS Safety Report 9564819 (Version 1)
Quarter: 2013Q3

REPORT INFORMATION
  Report Type: Report from Study
  Country: GB (occurrence: GB)
  Receive Date: 20130930
  Receipt Date: 20130930
  Transmission Date: 20140515
  Serious: Yes (Other)
  Sender: FDA-Public Use
  Company Number: GB-AMGEN-GBRCT2013068064

PATIENT
  Age: 75 Year
  Sex: Male
  Weight: 88.88 kg

DRUGS (11)
  1. ETANERCEPT [Suspect]
     Indication: PRODUCT USED FOR UNKNOWN INDICATION
     Dosage: 50 MG, QWK
     Route: 065
     Dates: start: 20110802
  2. BISOPROLOL [Concomitant]
     Dosage: UNK
     Route: 065
     Dates: start: 20060715
  3. ACETYLSALICYLIC ACID [Concomitant]
     Dosage: UNK
     Route: 065
     Dates: start: 20060715
  4. DIAZEPAM [Concomitant]
     Dosage: UNK UNK, UNK
     Route: 065
  5. GLUCOSAMINE [Concomitant]
     Dosage: UNK
     Route: 065
     Dates: start: 20080715
  6. DOTHIEPIN                          /00160401/ [Concomitant]
     Dosage: UNK
     Route: 065
     Dates: start: 20050715
  7. WARFARIN [Concomitant]
     Dosage: UNK
     Route: 065
     Dates: start: 20111215
  8. OLMESARTAN MEDOXOMIL [Concomitant]
     Dosage: UNK
     Route: 065
     Dates: start: 20120115
  9. ROSUVASTATIN [Concomitant]
     Dosage: UNK
     Route: 065
     Dates: start: 20120615
  10. CALCICHEW-D3 [Concomitant]
     Dosage: UNK
     Route: 065
     Dates: start: 20121122, end: 20130222
  11. KAPAKE [Concomitant]
     Dosage: UNK
     Route: 065
     Dates: start: 20120815

REACTIONS (1)
  - Basal cell carcinoma [Not Recovered/Not Resolved]
